FAERS Safety Report 5975259-X (Version None)
Quarter: 2008Q4

REPORT INFORMATION
  Report Type: 
  Country: None (occurrence: None)
  Receive Date: 20081202
  Receipt Date: 20080519
  Transmission Date: 20090506
  Serious: No
  Sender: FDA-Public Use
  Company Number: US-BAYER-200812255BCC

PATIENT
  Age: 64 Year
  Sex: Female
  Weight: 88 kg

DRUGS (14)
  1. ALEVE (CAPLET) [Suspect]
     Indication: ARTHRITIS
     Dosage: TOTAL DAILY DOSE: 220 MG  UNIT DOSE: 220 MG
     Route: 048
     Dates: start: 20080501, end: 20080506
  2. ALEVE (CAPLET) [Suspect]
     Dosage: TOTAL DAILY DOSE: 220 MG  UNIT DOSE: 220 MG
     Route: 048
     Dates: start: 20080512, end: 20080515
  3. ALEVE (CAPLET) [Suspect]
     Dosage: TOTAL DAILY DOSE: 440 MG  UNIT DOSE: 220 MG
     Route: 048
     Dates: start: 20080516
  4. ALEVE (CAPLET) [Suspect]
     Dosage: TOTAL DAILY DOSE: 440 MG  UNIT DOSE: 220 MG
     Route: 048
     Dates: start: 20080507, end: 20080511
  5. TYLENOL ARTHRITIS STRENGTH [Concomitant]
     Dosage: TOTAL DAILY DOSE: 1 DF  UNIT DOSE: 1 DF
     Route: 048
     Dates: start: 20070101
  6. LISINOPRIL AND HYDROCHLOROTHIAZIDE [Concomitant]
  7. ZYRTEC [Concomitant]
  8. NASONEX [Concomitant]
  9. PREMARIN [Concomitant]
  10. CALCIUM (GNC BRAND) [Concomitant]
  11. FISH OIL [Concomitant]
  12. VITAMIN B 100 COMPLEX [Concomitant]
  13. GLUCOSAMINE CHONDROITIN [Concomitant]
  14. MULTI-VITAMIN VI (KIRKLAND BRAND) [Concomitant]

REACTIONS (3)
  - ARTHRALGIA [None]
  - PRURITUS [None]
  - RASH ERYTHEMATOUS [None]
